FAERS Safety Report 4390482-6 (Version None)
Quarter: 2004Q2

REPORT INFORMATION
  Report Type: 
  Country: None (occurrence: None)
  Receive Date: 20040630
  Receipt Date: 20040622
  Transmission Date: 20050107
  Serious: Yes (Other)
  Sender: FDA-Public Use
  Company Number: HQWYE545122JUN04

PATIENT
  Age: 33 Year
  Sex: Male

DRUGS (1)
  1. DIMETAPP HEADCOLD AND FLU (IBUPROFEN/PSEUDOEPHEDRINE, TABLET) LOT NO.3 [Suspect]
     Indication: INFLUENZA
     Dosage: 1-2 TABLETS EVERY 4-6 HOURS
     Route: 048
     Dates: start: 20040619, end: 20040620

REACTIONS (3)
  - OROPHARYNGEAL SWELLING [None]
  - SWELLING FACE [None]
  - SWOLLEN TONGUE [None]
